FAERS Safety Report 9314613 (Version 1)
Quarter: 2013Q2

REPORT INFORMATION
  Report Type: Spontaneous
  Country: ES (occurrence: ES)
  Receive Date: 20130529
  Receipt Date: 20130529
  Transmission Date: 20140414
  Serious: Yes (Other)
  Sender: FDA-Public Use
  Company Number: ES-JNJFOC-20130514817

PATIENT
  Age: 37 Year
  Sex: Male

DRUGS (2)
  1. XARELTO [Suspect]
     Indication: EMBOLISM VENOUS
     Route: 048
     Dates: start: 20130422
  2. XARELTO [Suspect]
     Indication: MUSCLE STRAIN
     Route: 048
     Dates: start: 20130422

REACTIONS (1)
  - Panniculitis [Recovered/Resolved with Sequelae]
